FAERS Safety Report 19823217 (Version 2)
Quarter: 2021Q4

REPORT INFORMATION
  Report Type: Report from Study
  Country: US (occurrence: US)
  Receive Date: 20210913
  Receipt Date: 20211001
  Transmission Date: 20220303
  Serious: Yes (Other)
  Sender: FDA-Public Use
  Company Number: US-BRISTOL-MYERS SQUIBB COMPANY-BMS-2021-089995

PATIENT
  Sex: Male

DRUGS (1)
  1. APIXABAN [Suspect]
     Active Substance: APIXABAN
     Indication: Deep vein thrombosis
     Dosage: 5 MILLIGRAM, QD
     Route: 065

REACTIONS (9)
  - Skin ulcer haemorrhage [Unknown]
  - Swelling [Unknown]
  - Skin burning sensation [Unknown]
  - Skin ulcer [Unknown]
  - Gait disturbance [Unknown]
  - Paraesthesia [Unknown]
  - Pain in extremity [Unknown]
  - Product communication issue [Unknown]
  - Nasopharyngitis [Unknown]
